FAERS Safety Report 6287595-0 (Version None)
Quarter: 2009Q3

REPORT INFORMATION
  Report Type: 
  Country: None (occurrence: None)
  Receive Date: 20090727
  Receipt Date: 20090727
  Transmission Date: 20100115
  Serious: Yes (Other)
  Sender: FDA-Public Use
  Company Number: None

PATIENT
  Age: 76 Year

DRUGS (1)
  1. CLONIDINE [Suspect]
     Indication: HYPERTENSION
     Dosage: 2 - 0.1 MG EACH ONE TIME ONLY
     Dates: start: 20090705

REACTIONS (2)
  - HALLUCINATION, VISUAL [None]
  - INSOMNIA [None]
